FAERS Safety Report 11990104 (Version 1)
Quarter: 2016Q1

REPORT INFORMATION
  Report Type: Spontaneous
  Country: US (occurrence: US)
  Receive Date: 20160202
  Receipt Date: 20160202
  Transmission Date: 20160526
  Serious: No
  Sender: FDA-Public Use
  Company Number: US-APOTEX-2015AP012377

PATIENT
  Age: 44 Year
  Sex: Female

DRUGS (1)
  1. TRAMADOL HYDROCHLORIDE. [Suspect]
     Active Substance: TRAMADOL HYDROCHLORIDE
     Indication: ALLERGY TEST
     Route: 065

REACTIONS (9)
  - Throat tightness [Unknown]
  - Dysphonia [Unknown]
  - Vomiting [Unknown]
  - Somnolence [Unknown]
  - Pruritus [Unknown]
  - Dyspnoea [Unknown]
  - Fatigue [Unknown]
  - Nausea [Unknown]
  - Erythema [Unknown]
